FAERS Safety Report 8089392-2 (Version None)
Quarter: 2012Q1

REPORT INFORMATION
  Report Type: 
  Country: None (occurrence: None)
  Receive Date: 20120128
  Receipt Date: 20110712
  Transmission Date: 20120608
  Serious: No
  Sender: FDA-Public Use
  Company Number: US-ABBOTT-11P-163-0838338-00

PATIENT
  Age: 58 Year
  Sex: Female

DRUGS (4)
  1. STOMACH MEDICATION [Concomitant]
     Indication: ULCER
  2. METHOTREXATE [Concomitant]
     Indication: RHEUMATOID ARTHRITIS
  3. HUMIRA [Suspect]
     Indication: RHEUMATOID ARTHRITIS
     Dates: start: 20060701
  4. CELEBREX [Concomitant]
     Indication: RHEUMATOID ARTHRITIS

REACTIONS (1)
  - PAIN [None]
